FAERS Safety Report 13352092 (Version 1)
Quarter: 2017Q1

REPORT INFORMATION
  Report Type: Spontaneous
  Country: US (occurrence: US)
  Receive Date: 20170320
  Receipt Date: 20170320
  Transmission Date: 20170429
  Serious: No
  Sender: FDA-Public Use
  Company Number: US-SA-2016SA111961

PATIENT
  Age: 73 Year
  Sex: Female

DRUGS (2)
  1. NASACORT ALLERGY 24HR [Suspect]
     Active Substance: TRIAMCINOLONE ACETONIDE
     Indication: SINUSITIS
     Dosage: SPRAY 1 SQUIRT IN EACH NOSTRIL.
     Route: 045
  2. NASACORT ALLERGY 24HR [Suspect]
     Active Substance: TRIAMCINOLONE ACETONIDE
     Indication: SINUSITIS
     Dosage: START DATE ABOUT 6 WEEKS AGO. SPRAY 2 SQUIRTS IN EACH NOSTRIL
     Route: 045

REACTIONS (2)
  - Hypoaesthesia [Unknown]
  - Paraesthesia [Unknown]

NARRATIVE: CASE EVENT DATE: 20160609
